FAERS Safety Report 6761445-8 (Version None)
Quarter: 2010Q2

REPORT INFORMATION
  Report Type: 
  Country: None (occurrence: None)
  Receive Date: 20100608
  Receipt Date: 20100601
  Transmission Date: 20101027
  Serious: Yes (Life-Threatening, Hospitalization, Other)
  Sender: FDA-Public Use
  Company Number: NL-ROCHE-707215

PATIENT
  Sex: Female

DRUGS (1)
  1. XELODA [Suspect]
     Dosage: FREQUENCY AS REPORTED: 2 WEEKS, 1 WEEK STOP.
     Route: 048
     Dates: start: 20100501, end: 20100501

REACTIONS (4)
  - BLOOD GLUCOSE INCREASED [None]
  - BLOOD TEST ABNORMAL [None]
  - DIARRHOEA [None]
  - DIHYDROPYRIMIDINE DEHYDROGENASE DEFICIENCY [None]
